FAERS Safety Report 18587660 (Version 3)
Quarter: 2021Q1

REPORT INFORMATION
  Report Type: Report from Study
  Country: CA (occurrence: CA)
  Receive Date: 20201207
  Receipt Date: 20210329
  Transmission Date: 20210419
  Serious: Yes (Other)
  Sender: FDA-Public Use
  Company Number: CA-TAKEDA-2020TUS053768

PATIENT
  Age: 69 Year
  Sex: Female

DRUGS (23)
  1. MAGNESIUM [Concomitant]
     Active Substance: MAGNESIUM
     Dosage: 200 MILLIGRAM, TID
  2. COLACE [Concomitant]
     Active Substance: DOCUSATE SODIUM
     Indication: FAECES HARD
     Dosage: 2 TABLET, BID
  3. TEDUGLUTIDE [Suspect]
     Active Substance: TEDUGLUTIDE
     Indication: SHORT-BOWEL SYNDROME
     Dosage: 2.80 MILLIGRAM, QD
     Route: 065
     Dates: start: 20180528
  4. BISOPROLOL [Concomitant]
     Active Substance: BISOPROLOL
     Dosage: 2.5
  5. CALCIUM [Concomitant]
     Active Substance: CALCIUM
     Dosage: 500 MILLIGRAM, QD
  6. SOLUCAL D [Concomitant]
     Dosage: 25 MILLIGRAM, QD
  7. VITAMIN D 2000 [Concomitant]
     Active Substance: VITAMIN D NOS
     Dosage: UNK UNK, TID
  8. ACETYLSALICYLIC ACID [Concomitant]
     Active Substance: ASPIRIN
     Dosage: 80 MILLIGRAM, QD
  9. INDAPAMID [Concomitant]
     Active Substance: INDAPAMIDE
     Indication: URINE CALCIUM INCREASED
     Dosage: 2.5 MILLIGRAM
     Route: 065
  10. TPN NO.2 [Concomitant]
     Dosage: UNK
     Dates: start: 19981001, end: 20180923
  11. SOLIFENACIN [Concomitant]
     Active Substance: SOLIFENACIN
     Dosage: 5 MILLIGRAM, QD
     Dates: start: 20181203, end: 2020
  12. DIOVAN [Concomitant]
     Active Substance: VALSARTAN
     Dosage: UNK
     Dates: end: 20200927
  13. TEDUGLUTIDE [Suspect]
     Active Substance: TEDUGLUTIDE
     Indication: SHORT-BOWEL SYNDROME
     Dosage: 2.80 MILLIGRAM, QD
     Route: 065
     Dates: start: 20180528
  14. TEDUGLUTIDE [Suspect]
     Active Substance: TEDUGLUTIDE
     Indication: SHORT-BOWEL SYNDROME
     Dosage: 2.80 MILLIGRAM, QD
     Route: 065
     Dates: start: 20180528
  15. ELAVIL [ALLOPURINOL] [Concomitant]
     Active Substance: ALLOPURINOL
     Dosage: 25 MILLIGRAM, QD
     Route: 048
  16. ATIVAN [Concomitant]
     Active Substance: LORAZEPAM
     Dosage: 0.5 MILLIGRAM, Q1HR
  17. TEDUGLUTIDE [Suspect]
     Active Substance: TEDUGLUTIDE
     Indication: SHORT-BOWEL SYNDROME
     Dosage: 2.80 MILLIGRAM, QD
     Route: 065
     Dates: start: 20180528
  18. CENTRUM A TO ZINC [Concomitant]
     Active Substance: MINERALS\VITAMINS
     Dosage: UNK UNK, QD
  19. MAGNESIUM [Concomitant]
     Active Substance: MAGNESIUM
     Dosage: 20 MILLIGRAM, TID
  20. SYNTHROID [Concomitant]
     Active Substance: LEVOTHYROXINE SODIUM
     Dosage: 75 MILLIGRAM
     Dates: start: 20200407
  21. POTASSIUM [Concomitant]
     Active Substance: POTASSIUM
     Dosage: 2 TABS ONCE A DAY (INCREASED FROM 1 TAB A DAY IN MARCH 2019)
  22. PANTOLOC CONTROL [Concomitant]
     Active Substance: PANTOPRAZOLE SODIUM
     Dosage: 40 MILLIGRAM, QD
  23. LAX A DAY PHARMA [Concomitant]
     Indication: FAECES HARD

REACTIONS (9)
  - Nephrolithiasis [Not Recovered/Not Resolved]
  - Periarthritis [Unknown]
  - Skin warm [Unknown]
  - Pain [Unknown]
  - Infusion site haemorrhage [Unknown]
  - Infusion site erythema [Unknown]
  - Pain in extremity [Unknown]
  - Asthenia [Not Recovered/Not Resolved]
  - Infusion site mass [Unknown]
